FAERS Safety Report 6490947-7 (Version None)
Quarter: 2009Q4

REPORT INFORMATION
  Report Type: 
  Country: None (occurrence: None)
  Receive Date: 20091211
  Receipt Date: 20090216
  Transmission Date: 20100525
  Serious: No
  Sender: FDA-Public Use
  Company Number: US-TYCO HEALTHCARE/MALLINCKRODT-T200900417

PATIENT
  Sex: Male
  Weight: 19.048 kg

DRUGS (2)
  1. METHYLIN [Suspect]
     Indication: ATTENTION DEFICIT/HYPERACTIVITY DISORDER
     Dosage: 5 MG, 1 TAB BEFORE BREAKFAST, LUNCH, BETWEEN 3-4 PM, DAILY
     Route: 048
     Dates: start: 20080401
  2. MELATONIN [Concomitant]
     Indication: INSOMNIA
     Dosage: 3 MG, 1 TAB AT BED TIME PRN
     Route: 048

REACTIONS (5)
  - AGGRESSION [None]
  - ANXIETY [None]
  - DIZZINESS [None]
  - REFUSAL OF TREATMENT BY PATIENT [None]
  - VISION BLURRED [None]
